FAERS Safety Report 8336044-7 (Version None)
Quarter: 2012Q2

REPORT INFORMATION
  Report Type: 
  Country: None (occurrence: None)
  Receive Date: 20120501
  Receipt Date: 20120501
  Transmission Date: 20120825
  Serious: Yes (Hospitalization)
  Sender: FDA-Public Use
  Company Number: None

PATIENT
  Age: 44 Year
  Sex: Male
  Weight: 105.4 kg

DRUGS (1)
  1. ZOLPIDEM [Suspect]
     Indication: INSOMNIA
     Dosage: MG PO
     Route: 048
     Dates: start: 20120217, end: 20120322

REACTIONS (4)
  - IMPULSIVE BEHAVIOUR [None]
  - CHEST PAIN [None]
  - INTENTIONAL OVERDOSE [None]
  - SEDATION [None]
